FAERS Safety Report 5910528-0 (Version None)
Quarter: 2008Q4

REPORT INFORMATION
  Report Type: 
  Country: None (occurrence: None)
  Receive Date: 20081007
  Receipt Date: 20080502
  Transmission Date: 20090506
  Serious: Yes (Other)
  Sender: FDA-Public Use
  Company Number: US-ASTRAZENECA-2008UW04024

PATIENT
  Age: 60 Year
  Sex: Female
  Weight: 50.3 kg

DRUGS (6)
  1. ARIMIDEX [Suspect]
     Indication: BREAST CANCER
     Route: 048
     Dates: start: 20030312, end: 20080312
  2. BONIVA [Concomitant]
  3. VITAMINS [Concomitant]
  4. DIAZEPAM [Concomitant]
  5. CALCIUM [Concomitant]
  6. RADIATION [Concomitant]
     Dates: start: 20030301

REACTIONS (28)
  - ABDOMINAL PAIN UPPER [None]
  - ALOPECIA [None]
  - ANXIETY [None]
  - ARTHRALGIA [None]
  - ASTHENIA [None]
  - BACK PAIN [None]
  - BLOOD CHOLESTEROL INCREASED [None]
  - BREAST PAIN [None]
  - CATARACT [None]
  - CONSTIPATION [None]
  - COUGH [None]
  - DEPRESSED MOOD [None]
  - DIARRHOEA [None]
  - DIZZINESS [None]
  - DYSPNOEA [None]
  - FEELING ABNORMAL [None]
  - FREQUENT BOWEL MOVEMENTS [None]
  - HEADACHE [None]
  - HOT FLUSH [None]
  - HYPERTENSION [None]
  - INSOMNIA [None]
  - MYALGIA [None]
  - NAUSEA [None]
  - NERVOUSNESS [None]
  - OSTEOPENIA [None]
  - OSTEOPOROSIS [None]
  - PELVIC PAIN [None]
  - WITHDRAWAL SYNDROME [None]
